FAERS Safety Report 24129927 (Version 1)
Quarter: 2024Q3

REPORT INFORMATION
  Report Type: Spontaneous
  Country: US (occurrence: US)
  Receive Date: 20240724
  Receipt Date: 20240724
  Transmission Date: 20241017
  Serious: No
  Sender: AMGEN
  Company Number: US-AMGEN-USASP2024144081

PATIENT
  Sex: Female

DRUGS (2)
  1. TAVNEOS [Suspect]
     Active Substance: AVACOPAN
     Indication: Product used for unknown indication
     Dosage: UNK
     Route: 065
  2. TAVNEOS [Suspect]
     Active Substance: AVACOPAN
     Dosage: UNK (REDUCING THE DOSE TO ONE PILL )
     Route: 065

REACTIONS (2)
  - Weight decreased [Unknown]
  - Drug intolerance [Unknown]
